FAERS Safety Report 4361116-1 (Version None)
Quarter: 2004Q2

REPORT INFORMATION
  Report Type: 
  Country: None (occurrence: None)
  Receive Date: 20040520
  Receipt Date: 20040504
  Transmission Date: 20050107
  Serious: Yes (Life-Threatening, Hospitalization)
  Sender: FDA-Public Use
  Company Number: FR-BRISTOL-MYERS SQUIBB COMPANY-12591038

PATIENT
  Age: 53 Year
  Sex: Female

DRUGS (5)
  1. HOLOXAN [Suspect]
     Indication: SARCOMA
     Dosage: CYCLE 1: 27-OCT-2003
     Route: 042
     Dates: start: 20031113, end: 20031113
  2. CISPLATIN [Suspect]
     Indication: SARCOMA
     Dosage: CYCLE 1: 27-OCT-2003
     Route: 042
     Dates: start: 20031113, end: 20031113
  3. UROMITEXAN INJ [Suspect]
     Indication: SARCOMA
     Dosage: CYCLE 1: 27-OCT-2003
     Route: 042
     Dates: start: 20031113, end: 20031113
  4. ADRIBLASTIN [Concomitant]
     Indication: SARCOMA
     Dosage: CYCLE 1: 27-OCT-2003
     Route: 042
     Dates: start: 20031113, end: 20031113
  5. NEULASTA [Suspect]
     Indication: PROPHYLAXIS
     Route: 058
     Dates: start: 20031115, end: 20031115

REACTIONS (4)
  - NEUTROPENIA [None]
  - PYREXIA [None]
  - SEPSIS [None]
  - THROMBOCYTOPENIA [None]
